FAERS Safety Report 23039062 (Version 1)
Quarter: 2023Q4

REPORT INFORMATION
  Report Type: Report from Study
  Country: AT (occurrence: None)
  Receive Date: 20231006
  Receipt Date: 20231006
  Transmission Date: 20240109
  Serious: Yes (Other)
  Sender: FDA-Public Use
  Company Number: 2023A225935

PATIENT

DRUGS (2)
  1. ACALABRUTINIB [Suspect]
     Active Substance: ACALABRUTINIB
     Indication: Chronic lymphocytic leukaemia
     Route: 048
  2. ACALABRUTINIB [Concomitant]
     Active Substance: ACALABRUTINIB

REACTIONS (4)
  - Myocardial injury [Unknown]
  - Haemorrhagic diathesis [Unknown]
  - Headache [Unknown]
  - Diarrhoea [Unknown]
